FAERS Safety Report 23333714 (Version 5)
Quarter: 2024Q2

REPORT INFORMATION
  Report Type: Report from Study
  Country: CH (occurrence: CH)
  Receive Date: 20231223
  Receipt Date: 20240528
  Transmission Date: 20240716
  Serious: Yes (Hospitalization, Other)
  Sender: FDA-Public Use
  Company Number: CH-ABBVIE-4153076

PATIENT
  Age: 69 Year
  Sex: Female

DRUGS (3)
  1. UPADACITINIB [Suspect]
     Active Substance: UPADACITINIB
     Indication: Rheumatoid arthritis
     Route: 048
     Dates: start: 20220903, end: 20221122
  2. UPADACITINIB [Suspect]
     Active Substance: UPADACITINIB
     Indication: Rheumatoid arthritis
     Route: 048
     Dates: start: 20230115, end: 20230903
  3. UPADACITINIB [Suspect]
     Active Substance: UPADACITINIB
     Indication: Rheumatoid arthritis
     Route: 048
     Dates: start: 20211211, end: 20220824

REACTIONS (7)
  - Bursitis [Recovering/Resolving]
  - Sepsis [Recovering/Resolving]
  - Pneumonia [Recovered/Resolved]
  - Fibula fracture [Recovering/Resolving]
  - Skin infection [Recovered/Resolved]
  - Rheumatoid arthritis [Not Recovered/Not Resolved]
  - Bursa removal [Recovering/Resolving]

NARRATIVE: CASE EVENT DATE: 20220101
